FAERS Safety Report 20024021 (Version 2)
Quarter: 2021Q4

REPORT INFORMATION
  Report Type: Spontaneous
  Country: US (occurrence: US)
  Receive Date: 20211102
  Receipt Date: 20211112
  Transmission Date: 20220303
  Serious: No
  Sender: FDA-Public Use
  Company Number: US-NOVARTISTESTPH-NVSC2021US249809

PATIENT
  Sex: Male

DRUGS (3)
  1. TAFINLAR [Suspect]
     Active Substance: DABRAFENIB MESYLATE
     Indication: Brain neoplasm malignant
     Dosage: 75 MG, QD, (DAILY IN EVENING), (STRENGTH : 75 MG)
     Route: 048
     Dates: start: 20190406
  2. TAFINLAR [Suspect]
     Active Substance: DABRAFENIB MESYLATE
     Dosage: 100 MG, QD, (DAILY IN MORNING), (STRENGTH : 50 MG)
     Route: 048
     Dates: start: 20201012
  3. MEKINIST [Suspect]
     Active Substance: TRAMETINIB DIMETHYL SULFOXIDE
     Indication: Brain neoplasm malignant
     Dosage: 1 MG, QD
     Route: 048
     Dates: start: 20190406

REACTIONS (2)
  - Abnormal behaviour [Unknown]
  - Product use in unapproved indication [Unknown]
